FAERS Safety Report 18026841 (Version 6)
Quarter: 2020Q4

REPORT INFORMATION
  Report Type: Spontaneous
  Country: US (occurrence: US)
  Receive Date: 20200715
  Receipt Date: 20201207
  Transmission Date: 20210113
  Serious: Yes (Other)
  Sender: FDA-Public Use
  Company Number: US-INCYTE CORPORATION-2020IN000654

PATIENT

DRUGS (12)
  1. JAKAFI [Suspect]
     Active Substance: RUXOLITINIB
     Indication: POLYCYTHAEMIA VERA
     Dosage: 20 MILLIGRAM, BID
     Route: 048
     Dates: start: 20190222
  2. JAKAFI [Suspect]
     Active Substance: RUXOLITINIB
     Dosage: TAKING HALF THE DOSE
     Route: 065
     Dates: start: 202006
  3. JAKAFI [Suspect]
     Active Substance: RUXOLITINIB
     Dosage: 10 MILLIGRAM, BID
     Route: 048
     Dates: start: 20190222
  4. DILTIAZEM HCL [Concomitant]
     Active Substance: DILTIAZEM HYDROCHLORIDE
     Indication: PRODUCT USED FOR UNKNOWN INDICATION
     Route: 065
  5. ASPIRIN EC [Concomitant]
     Active Substance: ASPIRIN
     Indication: PRODUCT USED FOR UNKNOWN INDICATION
     Route: 065
  6. TAMSULOSIN HYDROCHLORIDE. [Concomitant]
     Active Substance: TAMSULOSIN HYDROCHLORIDE
     Indication: PRODUCT USED FOR UNKNOWN INDICATION
     Route: 065
  7. JAKAFI [Suspect]
     Active Substance: RUXOLITINIB
     Dosage: 10 MILLIGRAM, BID
     Route: 048
     Dates: start: 20190222, end: 202008
  8. ADDERALL [Concomitant]
     Active Substance: AMPHETAMINE ASPARTATE\AMPHETAMINE SULFATE\DEXTROAMPHETAMINE SACCHARATE\DEXTROAMPHETAMINE SULFATE
     Indication: PRODUCT USED FOR UNKNOWN INDICATION
     Route: 065
  9. FUROSEMIDE. [Concomitant]
     Active Substance: FUROSEMIDE
     Indication: PRODUCT USED FOR UNKNOWN INDICATION
     Route: 065
  10. OMEPRAZOLE. [Concomitant]
     Active Substance: OMEPRAZOLE
     Indication: PRODUCT USED FOR UNKNOWN INDICATION
     Route: 065
  11. JAKAFI [Suspect]
     Active Substance: RUXOLITINIB
     Dosage: 10 MILLIGRAM, BID
     Route: 048
     Dates: start: 20190222
  12. JAKAFI [Suspect]
     Active Substance: RUXOLITINIB
     Dosage: 20 MILLIGRAM, BID
     Route: 048
     Dates: start: 20190222, end: 202006

REACTIONS (28)
  - Hypoxia [Unknown]
  - Arthralgia [Recovering/Resolving]
  - Wound haemorrhage [Unknown]
  - Decreased activity [Unknown]
  - Asthenia [Recovering/Resolving]
  - Platelet count increased [Unknown]
  - Anxiety [Unknown]
  - Bone pain [Unknown]
  - Blood disorder [Unknown]
  - Back pain [Unknown]
  - Red blood cell count decreased [Unknown]
  - Limb discomfort [Unknown]
  - Mobility decreased [Unknown]
  - Alopecia [Unknown]
  - Haemoglobin decreased [Unknown]
  - Lymphatic disorder [Recovering/Resolving]
  - Memory impairment [Unknown]
  - Weight increased [Recovering/Resolving]
  - Skin tightness [Recovering/Resolving]
  - Gait disturbance [Unknown]
  - Epistaxis [Unknown]
  - Intentional product use issue [Unknown]
  - Platelet count decreased [Recovering/Resolving]
  - Feeling abnormal [Unknown]
  - Somnolence [Unknown]
  - Lymphoedema [Recovering/Resolving]
  - Pain [Unknown]
  - Skin swelling [Unknown]

NARRATIVE: CASE EVENT DATE: 202008
